FAERS Safety Report 4886107-3 (Version None)
Quarter: 2006Q1

REPORT INFORMATION
  Report Type: 
  Country: None (occurrence: None)
  Receive Date: 20060117
  Receipt Date: 20060105
  Transmission Date: 20060701
  Serious: Yes (Hospitalization)
  Sender: FDA-Public Use
  Company Number: 2005135258

PATIENT
  Age: 79 Year
  Sex: Male
  Weight: 60 kg

DRUGS (7)
  1. TAHOR (ATORVASTATIN) [Suspect]
     Indication: HYPERCHOLESTEROLAEMIA
     Dosage: 1 DOSAGE FORM (1 IN 1 D), ORAL
     Route: 048
  2. NORFLOXACIN [Suspect]
     Indication: URINARY TRACT INFECTION
     Dosage: ORAL
     Route: 048
     Dates: start: 20050817
  3. FLUINDIONE (FLUINDIONE) [Suspect]
     Indication: ACUTE MYOCARDIAL INFARCTION
     Dosage: 20 MG, ORAL
     Route: 048
     Dates: end: 20050824
  4. ACETYLSALICYLATE LYSINE (ACETYLSALICYLATE LYSINE) [Suspect]
     Indication: ISCHAEMIC CARDIOMYOPATHY
     Dosage: 160 MG, ORAL
     Route: 048
     Dates: end: 20050824
  5. METOPROLOL (METOPROLOL) [Concomitant]
  6. TETRAZEPAM (TETRAZEPAM) [Concomitant]
  7. BUFLOMEDIL (BUFLOMEDIL) [Concomitant]

REACTIONS (12)
  - AORTIC DISORDER [None]
  - BLOOD CREATININE INCREASED [None]
  - DRUG INTERACTION [None]
  - ESCHERICHIA URINARY TRACT INFECTION [None]
  - HAEMATOMA [None]
  - HAEMATURIA [None]
  - HAEMOGLOBIN DECREASED [None]
  - INTERNATIONAL NORMALISED RATIO INCREASED [None]
  - MUSCLE HAEMORRHAGE [None]
  - POLYNEUROPATHY [None]
  - PROTHROMBIN TIME RATIO DECREASED [None]
  - SCIATICA [None]
